FAERS Safety Report 10182442 (Version 1)
Quarter: 2014Q2

REPORT INFORMATION
  Report Type: Spontaneous
  Country: CN (occurrence: CN)
  Receive Date: 20140520
  Receipt Date: 20140520
  Transmission Date: 20141212
  Serious: Yes (Other)
  Sender: FDA-Public Use
  Company Number: CN-ASTRAZENECA-2014SE33375

PATIENT
  Age: 22064 Day
  Sex: Male
  Weight: 49.5 kg

DRUGS (2)
  1. MEROPENEM [Suspect]
     Indication: INFECTION PROPHYLAXIS
     Route: 042
     Dates: start: 20121101
  2. CRESTOR [Suspect]
     Indication: CORONARY ARTERY DISEASE
     Route: 048
     Dates: start: 20121114, end: 20121124

REACTIONS (1)
  - Hepatic function abnormal [Recovering/Resolving]
